FAERS Safety Report 17053126 (Version 1)
Quarter: 2019Q4

REPORT INFORMATION
  Report Type: Spontaneous
  Country: US (occurrence: US)
  Receive Date: 20191120
  Receipt Date: 20191120
  Transmission Date: 20200122
  Serious: No
  Sender: FDA-Public Use
  Company Number: US-PFIZER INC-2019497186

PATIENT
  Age: 55 Year
  Sex: Male

DRUGS (1)
  1. BOSULIF [Suspect]
     Active Substance: BOSUTINIB MONOHYDRATE
     Dosage: 400 MG, UNK
     Dates: start: 20191027

REACTIONS (5)
  - Haemorrhoids [Unknown]
  - Fatigue [Unknown]
  - Haemorrhoidal haemorrhage [Unknown]
  - Pain [Unknown]
  - Vomiting [Unknown]
